FAERS Safety Report 23675850 (Version 1)
Quarter: 2024Q1

REPORT INFORMATION
  Report Type: Spontaneous
  Country: US (occurrence: US)
  Receive Date: 20240327
  Receipt Date: 20240327
  Transmission Date: 20240410
  Serious: Yes (Other)
  Sender: FDA-Public Use
  Company Number: US-SANDOZ-SDZ2024US031763

PATIENT
  Sex: Male

DRUGS (3)
  1. LINEZOLID [Suspect]
     Active Substance: LINEZOLID
     Indication: Mycobacterial peritonitis
     Route: 065
  2. CEFOXITIN [Concomitant]
     Active Substance: CEFOXITIN SODIUM
     Indication: Mycobacterial peritonitis
     Route: 065
  3. OMADACYCLINE [Concomitant]
     Active Substance: OMADACYCLINE
     Indication: Mycobacterial peritonitis
     Route: 065

REACTIONS (1)
  - Neuropathy peripheral [Unknown]
